FAERS Safety Report 7921294-1 (Version None)
Quarter: 2011Q4

REPORT INFORMATION
  Report Type: 
  Country: None (occurrence: None)
  Receive Date: 20111117
  Receipt Date: 20111109
  Transmission Date: 20120403
  Serious: Yes (Other)
  Sender: FDA-Public Use
  Company Number: GB-JNJFOC-20111105851

PATIENT
  Sex: Female

DRUGS (2)
  1. NIZORAL [Suspect]
     Indication: SEBORRHOEIC DERMATITIS
     Route: 061
  2. NIZORAL [Suspect]
     Route: 061

REACTIONS (3)
  - NEURALGIA [None]
  - CEREBRAL HAEMORRHAGE [None]
  - INAPPROPRIATE SCHEDULE OF DRUG ADMINISTRATION [None]
